FAERS Safety Report 4678568-X (Version None)
Quarter: 2005Q2

REPORT INFORMATION
  Report Type: 
  Country: None (occurrence: None)
  Receive Date: 20050527
  Receipt Date: 20050513
  Transmission Date: 20051028
  Serious: Yes (Other)
  Sender: FDA-Public Use
  Company Number: 430001M05CAN

PATIENT
  Age: 59 Year
  Sex: Female

DRUGS (6)
  1. NOVANTRONE [Suspect]
     Indication: MULTIPLE SCLEROSIS
     Dosage: 1 IN 3 MONTHS,  INTRAVENOUS
     Route: 042
     Dates: start: 20030101, end: 20050201
  2. CYCLOBENZAPRINE HYDROCHLORIDE [Concomitant]
  3. ZOPICLONE [Concomitant]
  4. NICOTINIC ACID [Concomitant]
  5. GLUCOSAMINE [Concomitant]
  6. PARACETAMOL [Concomitant]

REACTIONS (3)
  - ABSCESS INTESTINAL [None]
  - DIVERTICULITIS [None]
  - DIVERTICULUM [None]
